FAERS Safety Report 9114967 (Version 1)
Quarter: 2013Q1

REPORT INFORMATION
  Report Type: Spontaneous
  Country: DK (occurrence: None)
  Receive Date: 20130125
  Receipt Date: 20130125
  Transmission Date: 20140127
  Serious: Yes (Hospitalization)
  Sender: FDA-Public Use
  Company Number: 2013MA000648

PATIENT
  Age: 25 Year
  Sex: Male

DRUGS (1)
  1. FEVERALL (ACETAMINOPHEN RECTAL SUPPOSITORIES) 650 MG (ALPHARMA) (PARACETAMOL) [Suspect]
     Indication: PYREXIA
     Route: 048
     Dates: start: 20121203, end: 20121203

REACTIONS (4)
  - Respiratory failure [None]
  - Erythema [None]
  - Pruritus [None]
  - Swelling face [None]
